FAERS Safety Report 23805021 (Version 1)
Quarter: 2024Q2

REPORT INFORMATION
  Report Type: Report from Study
  Country: CA (occurrence: CA)
  Receive Date: 20240502
  Receipt Date: 20240502
  Transmission Date: 20240716
  Serious: Yes (Other)
  Sender: FDA-Public Use
  Company Number: CA-TEVA-VS-3191339

PATIENT
  Age: 76 Year
  Sex: Female

DRUGS (1)
  1. AJOVY [Suspect]
     Active Substance: FREMANEZUMAB-VFRM
     Indication: Migraine prophylaxis
     Route: 058
     Dates: start: 20231130

REACTIONS (5)
  - Thinking abnormal [Unknown]
  - Fall [Unknown]
  - Hand fracture [Unknown]
  - Head injury [Unknown]
  - Haemorrhage [Unknown]
